FAERS Safety Report 7619310-X (Version None)
Quarter: 2011Q3

REPORT INFORMATION
  Report Type: 
  Country: None (occurrence: None)
  Receive Date: 20110718
  Receipt Date: 20110711
  Transmission Date: 20111222
  Serious: No
  Sender: FDA-Public Use
  Company Number: US-B.I. PHARMACEUTICALS,INC./RIDGEFIELD-2011-BP-17427BP

PATIENT
  Age: 83 Year
  Sex: Male

DRUGS (6)
  1. BETA BLOCKER [Concomitant]
     Indication: ATRIAL FIBRILLATION
  2. VESICARE [Concomitant]
     Indication: PROSTATOMEGALY
     Route: 048
  3. MOBIC [Concomitant]
     Indication: MIGRAINE
     Route: 048
  4. PRADAXA [Suspect]
     Indication: ATRIAL FIBRILLATION
     Dosage: 300 MG
     Route: 048
     Dates: start: 20110207
  5. HYDROCHLOROTHIAZIDE [Concomitant]
     Route: 048
  6. FLOMAX [Concomitant]
     Indication: PROSTATOMEGALY
     Route: 048

REACTIONS (1)
  - CONFUSIONAL STATE [None]
